FAERS Safety Report 5296351-1 (Version None)
Quarter: 2007Q2

REPORT INFORMATION
  Report Type: 
  Country: None (occurrence: None)
  Receive Date: 20070413
  Receipt Date: 20070409
  Transmission Date: 20071010
  Serious: Yes (Disabling, Other)
  Sender: FDA-Public Use
  Company Number: US-MERCK-0703USA04034

PATIENT
  Age: 50 Year
  Sex: Female
  Weight: 54 kg

DRUGS (1)
  1. FOSAMAX [Suspect]
     Indication: PROPHYLAXIS
     Route: 048
     Dates: start: 20010401, end: 20060801

REACTIONS (3)
  - FEMUR FRACTURE [None]
  - IMPAIRED HEALING [None]
  - PARAESTHESIA [None]
